FAERS Safety Report 7952668-0 (Version None)
Quarter: 2011Q4

REPORT INFORMATION
  Report Type: 
  Country: None (occurrence: None)
  Receive Date: 20111201
  Receipt Date: 20111121
  Transmission Date: 20120403
  Serious: Yes (Other)
  Sender: FDA-Public Use
  Company Number: DE-PFIZER INC-2011292103

PATIENT
  Age: 45 Year
  Sex: Female

DRUGS (1)
  1. MORPHINE SULFATE [Suspect]
     Indication: ACCIDENTAL EXPOSURE

REACTIONS (3)
  - SYNCOPE [None]
  - OCCUPATIONAL EXPOSURE TO DRUG [None]
  - ROAD TRAFFIC ACCIDENT [None]
